FAERS Safety Report 25493277 (Version 1)
Quarter: 2025Q2

REPORT INFORMATION
  Report Type: Report from Study
  Country: KR (occurrence: KR)
  Receive Date: 20250630
  Receipt Date: 20250630
  Transmission Date: 20250717
  Serious: Yes (Other)
  Sender: EMD SERONO INC
  Company Number: KR-MS202082_0010_018-0004-10

PATIENT
  Age: 82 Year
  Sex: Female
  Weight: 47 kg

DRUGS (51)
  1. BAVENCIO [Suspect]
     Active Substance: AVELUMAB
     Indication: Transitional cell carcinoma metastatic
  2. CALCIUM CARBONATE\CHOLECALCIFEROL [Concomitant]
     Active Substance: CALCIUM CARBONATE\CHOLECALCIFEROL
     Indication: Product used for unknown indication
     Dosage: 1TAB/QD/PO
     Dates: start: 20240502
  3. ENCOVER [Concomitant]
     Indication: Product used for unknown indication
     Dosage: SOLN 200ML/BID/PO
     Dates: start: 20240819
  4. ENCOVER [Concomitant]
     Dosage: SOLN 200ML/BID/PO
     Dates: start: 20241125
  5. MACPERAN [METOCLOPRAMIDE] [Concomitant]
     Indication: Product used for unknown indication
     Dosage: 5MG/BID/PO
     Dates: start: 20240819
  6. XGEVA [Concomitant]
     Active Substance: DENOSUMAB
     Indication: Product used for unknown indication
     Dosage: 120MG/QD/SC
     Dates: start: 20240819
  7. XGEVA [Concomitant]
     Active Substance: DENOSUMAB
     Dosage: 120MG/QD/SC
     Dates: start: 20240927
  8. XGEVA [Concomitant]
     Active Substance: DENOSUMAB
     Dosage: 120MG/QD/SC
     Dates: start: 20241028
  9. XGEVA [Concomitant]
     Active Substance: DENOSUMAB
     Dosage: 120MG/QD/SC
     Dates: start: 20241125
  10. XGEVA [Concomitant]
     Active Substance: DENOSUMAB
     Dosage: 120MG/QD/SC
     Dates: start: 20241230
  11. FENTANYL [Concomitant]
     Active Substance: FENTANYL
     Indication: Product used for unknown indication
     Dosage: 1OTHERPAT/QD/TOPICAL
     Dates: start: 20240819
  12. PROPACETAMOL HYDROCHLORIDE [Concomitant]
     Active Substance: PROPACETAMOL HYDROCHLORIDE
     Indication: Product used for unknown indication
     Dosage: 1OTHERG/QD/IV
     Dates: start: 20240819
  13. LYRICA [Concomitant]
     Active Substance: PREGABALIN
     Indication: Product used for unknown indication
     Dosage: 75MG/BID/PO
     Dates: start: 20240822
  14. ULINASTATIN [Concomitant]
     Active Substance: ULINASTATIN
     Indication: Product used for unknown indication
     Dosage: 2ML/QD/IV
     Dates: start: 20240826
  15. DIMENHYDRINATE [Concomitant]
     Active Substance: DIMENHYDRINATE
     Indication: Product used for unknown indication
     Dosage: 50MG/TID/PO
     Dates: start: 20240826
  16. DIMENHYDRINATE [Concomitant]
     Active Substance: DIMENHYDRINATE
     Dosage: 50MG/TID/PO
     Dates: start: 20240827
  17. GINEXIN-F [Concomitant]
     Indication: Product used for unknown indication
     Dosage: 40MG/TID/PO
     Dates: start: 20240826
  18. GINEXIN-F [Concomitant]
     Dosage: 40MG/TID/PO
     Dates: start: 20240827
  19. MEGACE F [Concomitant]
     Indication: Product used for unknown indication
     Dosage: SUSPENSION, 5ML/QD/PO
     Dates: start: 20240826
  20. MEGACE F [Concomitant]
     Dosage: SUSPENSION, 5ML/QD/PO
     Dates: start: 20240827
  21. MEGACE F [Concomitant]
     Dosage: SUSPENSION, 5ML/QD/PO
     Dates: start: 20241230
  22. ONSERAN [Concomitant]
     Indication: Product used for unknown indication
     Dosage: 4MG/BID/PO
     Dates: start: 20240826
  23. ONSERAN [Concomitant]
     Dosage: 4MG/BID/PO
     Dates: start: 20240827
  24. GODEX [ADENINE HYDROCHLORIDE;BIFENDATE;CARNITINE OROTATE;CYANOCOBALAMI [Concomitant]
     Indication: Product used for unknown indication
     Dosage: 1OTHERCAP/TID/PO
     Dates: start: 20240902
  25. DAEWOONGBIO URSODEOXYCHOLIC ACID [Concomitant]
     Indication: Product used for unknown indication
     Dosage: 200MG/TID/PO
     Dates: start: 20240902
  26. DAEWOONGBIO URSODEOXYCHOLIC ACID [Concomitant]
     Dosage: 200MG/TID/PO
     Dates: start: 20240928
  27. XARELTO [Concomitant]
     Active Substance: RIVAROXABAN
     Indication: Product used for unknown indication
     Dosage: 10MG/QD/PO
     Dates: start: 20240902
  28. MAGNESIUM HYDROXIDE [Concomitant]
     Active Substance: MAGNESIUM HYDROXIDE
     Indication: Product used for unknown indication
     Dosage: 500MG/BID/PO
     Dates: start: 20240913
  29. MAGNESIUM HYDROXIDE [Concomitant]
     Active Substance: MAGNESIUM HYDROXIDE
     Dosage: 500MG/BID/PO
     Dates: start: 20250108
  30. PRUCALOPRIDE SUCCINATE [Concomitant]
     Active Substance: PRUCALOPRIDE SUCCINATE
     Indication: Product used for unknown indication
     Dosage: 1MG/QD/PO
     Dates: start: 20240913
  31. PRUCALOPRIDE SUCCINATE [Concomitant]
     Active Substance: PRUCALOPRIDE SUCCINATE
     Dosage: 1MG/QD/PO
     Dates: start: 20241230
  32. LEVOCETIRIZINE DIHYDROCHLORIDE [Concomitant]
     Active Substance: LEVOCETIRIZINE DIHYDROCHLORIDE
     Indication: Product used for unknown indication
     Dosage: 5MG/QD/PO
     Dates: start: 20240927
  33. XANAX [Concomitant]
     Active Substance: ALPRAZOLAM
     Indication: Product used for unknown indication
     Dosage: 0.25MG/QD/PO
     Dates: start: 20241014
  34. TRAST [Concomitant]
     Indication: Product used for unknown indication
     Dates: start: 20241028
  35. NALOXONE HYDROCHLORIDE\OXYCODONE HYDROCHLORIDE [Concomitant]
     Active Substance: NALOXONE HYDROCHLORIDE\OXYCODONE HYDROCHLORIDE
     Indication: Product used for unknown indication
     Dosage: 20/10MG/BID/PO
     Dates: start: 20241111
  36. NALOXONE HYDROCHLORIDE\OXYCODONE HYDROCHLORIDE [Concomitant]
     Active Substance: NALOXONE HYDROCHLORIDE\OXYCODONE HYDROCHLORIDE
     Dosage: 10/5MG/BID/PO
     Dates: start: 20241230
  37. CELEBREX [Concomitant]
     Active Substance: CELECOXIB
     Indication: Product used for unknown indication
     Dosage: 100MG/BID/PO
     Dates: start: 20241125
  38. TRAMADOL HYDROCHLORIDE [Concomitant]
     Active Substance: TRAMADOL HYDROCHLORIDE
     Indication: Product used for unknown indication
     Dosage: SR, 150MG/QD/PO
     Dates: start: 20241125
  39. ALMAGEL-F [Concomitant]
     Indication: Product used for unknown indication
     Dosage: SUSPENSION, 15ML/TID/PO
     Dates: start: 20241216
  40. TEGOPRAZAN [Concomitant]
     Active Substance: TEGOPRAZAN
     Indication: Product used for unknown indication
     Dosage: 1TAB/QD/PO
     Dates: start: 20241216
  41. FREAMINE [ALANINE;ARGININE;CYSTEINE HYDROCHLORIDE;GLYCINE;HISTIDINE;IS [Concomitant]
     Indication: Product used for unknown indication
     Dosage: 500ML/QD/IV (BAG)
     Dates: start: 20250108
  42. MORPHINE SULFATE [Concomitant]
     Active Substance: MORPHINE SULFATE
     Indication: Product used for unknown indication
     Dosage: 2ML/QD/IV
     Dates: start: 20250108
  43. URICAINE [Concomitant]
     Indication: Product used for unknown indication
     Dosage: 11ML/QD/TOPICAL, GEL
     Dates: start: 20250108
  44. HERBALS [Concomitant]
     Active Substance: HERBALS
     Indication: Product used for unknown indication
     Dosage: 1TAB/BID/PO
     Dates: start: 20250109
  45. ULTRACET [Concomitant]
     Active Substance: ACETAMINOPHEN\TRAMADOL HYDROCHLORIDE
     Indication: Product used for unknown indication
     Dosage: 1TAB/BID/PO
     Dates: start: 20250109
  46. FREEFOL MCT [Concomitant]
     Indication: Product used for unknown indication
     Dosage: 120MG/QD/IV
     Dates: start: 20250109
  47. LECLEAN [Concomitant]
     Indication: Product used for unknown indication
     Dosage: 133ML/QD/TOPICAL, SOLN
     Dates: start: 20250109
  48. TYLICOL [Concomitant]
     Indication: Product used for unknown indication
     Dosage: 100ML/QD/IV
     Dates: start: 20250109
  49. CALCIUM GLUCONATE [Concomitant]
     Active Substance: CALCIUM GLUCONATE
     Indication: Product used for unknown indication
     Dosage: 20ML/QD/IV
     Dates: start: 20250113
  50. PHOSTEN [Concomitant]
     Indication: Product used for unknown indication
     Dosage: 20ML/QD/IV
     Dates: start: 20250113
  51. DULACKHAN EASY [Concomitant]
     Indication: Product used for unknown indication
     Dosage: 20ML/QD/IV
     Dates: start: 20250113

REACTIONS (1)
  - ACTH-producing pituitary tumour [Recovering/Resolving]

NARRATIVE: CASE EVENT DATE: 20250102
